FAERS Safety Report 6018259-6 (Version None)
Quarter: 2008Q4

REPORT INFORMATION
  Report Type: 
  Country: None (occurrence: None)
  Receive Date: 20081223
  Receipt Date: 20081216
  Transmission Date: 20090506
  Serious: Yes (Hospitalization, Other)
  Sender: FDA-Public Use
  Company Number: PHHY2008JP31938

PATIENT
  Sex: Male

DRUGS (2)
  1. NEORAL [Suspect]
     Indication: RENAL TRANSPLANT
     Dosage: UNK
     Route: 048
  2. IMURAN [Concomitant]
     Indication: RENAL TRANSPLANT
     Route: 048

REACTIONS (4)
  - CATARACT [None]
  - EYE OPERATION [None]
  - INJURY [None]
  - RETINAL DETACHMENT [None]
